FAERS Safety Report 25792577 (Version 3)
Quarter: 2025Q4

REPORT INFORMATION
  Report Type: Spontaneous
  Country: CA (occurrence: CA)
  Receive Date: 20250911
  Receipt Date: 20251013
  Transmission Date: 20260117
  Serious: Yes (Life-Threatening, Hospitalization)
  Sender: TEVA
  Company Number: CA-TEVA-VS-3369435

PATIENT
  Age: 15 Year
  Sex: Female

DRUGS (3)
  1. PANTOPRAZOLE [Suspect]
     Active Substance: PANTOPRAZOLE
     Indication: Suicide attempt
     Dosage: INTENTIONALLY INGESTED THEIR PARENT^S SUPPLY OF PANTOPRAZOLE
     Route: 048
  2. COLCHICINE [Suspect]
     Active Substance: COLCHICINE
     Indication: Drug abuse
     Dosage: THE PATIENT INTENTIONALLY INGESTED COLCHICINE 0.56 MG/KG (DRUG ABUSE)
     Route: 048
  3. COLCHICINE [Suspect]
     Active Substance: COLCHICINE
     Indication: Drug abuse
     Dosage: INTENTIONALLY INGESTED THEIR PARENT^S SUPPLY COLCHICINE
     Route: 048

REACTIONS (11)
  - Toxicity to various agents [Recovering/Resolving]
  - Vomiting [Recovering/Resolving]
  - Blood lactic acid increased [Recovered/Resolved]
  - Drug abuse [Unknown]
  - Leukocytosis [Recovering/Resolving]
  - Coagulopathy [Recovered/Resolved]
  - Multi-organ disorder [Recovering/Resolving]
  - Hypertransaminasaemia [Recovering/Resolving]
  - Abdominal pain [Recovering/Resolving]
  - Pancytopenia [Recovering/Resolving]
  - Intentional overdose [Unknown]
